FAERS Safety Report 19768364 (Version 1)
Quarter: 2021Q3

REPORT INFORMATION
  Report Type: Spontaneous
  Country: US (occurrence: US)
  Receive Date: 20210831
  Receipt Date: 20210831
  Transmission Date: 20211014
  Serious: Yes (Death)
  Sender: FDA-Public Use
  Company Number: None

PATIENT
  Age: 21 Year
  Sex: Male

DRUGS (1)
  1. EQUATE COUGH DM [Suspect]
     Active Substance: DEXTROMETHORPHAN HYDROBROMIDE

REACTIONS (6)
  - Unresponsive to stimuli [None]
  - Drug dependence [None]
  - Respiratory arrest [None]
  - Renal failure [None]
  - Poisoning [None]
  - Accidental overdose [None]

NARRATIVE: CASE EVENT DATE: 20190504
